FAERS Safety Report 16611132 (Version 1)
Quarter: 2019Q3

REPORT INFORMATION
  Report Type: Spontaneous
  Country: CA (occurrence: CA)
  Receive Date: 20190722
  Receipt Date: 20190722
  Transmission Date: 20191004
  Serious: Yes (Life-Threatening)
  Sender: FDA-Public Use
  Company Number: PHHY2019CA168873

PATIENT
  Age: 71 Year
  Sex: Female

DRUGS (8)
  1. RITUXIMAB. [Suspect]
     Active Substance: RITUXIMAB
     Indication: MYASTHENIC SYNDROME
  2. RITUXIMAB. [Suspect]
     Active Substance: RITUXIMAB
     Indication: IMMUNOSUPPRESSANT DRUG THERAPY
  3. METHYLPREDNISOLONE SODIUM SUCCINATE. [Suspect]
     Active Substance: METHYLPREDNISOLONE SODIUM SUCCINATE
     Indication: RESPIRATORY FAILURE
     Dosage: 1 G, QD
     Route: 065
  4. METHYLPREDNISOLONE SODIUM SUCCINATE. [Suspect]
     Active Substance: METHYLPREDNISOLONE SODIUM SUCCINATE
     Dosage: 2 MG, QD
     Route: 065
  5. MYCOPHENOLATE MOFETIL. [Suspect]
     Active Substance: MYCOPHENOLATE MOFETIL
     Indication: IMMUNOSUPPRESSANT DRUG THERAPY
  6. PEMBROLIZUMAB. [Concomitant]
     Active Substance: PEMBROLIZUMAB
     Indication: MALIGNANT MELANOMA STAGE IV
     Route: 065
  7. MYCOPHENOLATE MOFETIL. [Suspect]
     Active Substance: MYCOPHENOLATE MOFETIL
     Indication: MYOCARDITIS
     Dosage: 1 G, BID
     Route: 065
  8. RITUXIMAB. [Suspect]
     Active Substance: RITUXIMAB
     Indication: MYOSITIS-LIKE SYNDROME
     Dosage: 375 MG, QW
     Route: 042

REACTIONS (6)
  - Treatment failure [Unknown]
  - Product use in unapproved indication [Unknown]
  - Arrhythmia [Recovered/Resolved]
  - Ventricular tachycardia [Recovered/Resolved]
  - Atrial fibrillation [Recovered/Resolved]
  - Bradycardia [Recovered/Resolved]
